FAERS Safety Report 9524553 (Version 2)
Quarter: 2013Q4

REPORT INFORMATION
  Report Type: Spontaneous
  Country: US (occurrence: US)
  Receive Date: 20130916
  Receipt Date: 20131003
  Transmission Date: 20140711
  Serious: No
  Sender: FDA-Public Use
  Company Number: US-PFIZER INC-2013265649

PATIENT
  Age: 62 Year
  Sex: Male
  Weight: 71.66 kg

DRUGS (6)
  1. CHANTIX [Suspect]
     Indication: SMOKING CESSATION THERAPY
     Dosage: UNK
     Dates: start: 20130903
  2. FISH OIL [Concomitant]
     Dosage: 1000 MG, 2X/DAY
  3. TYLENOL PM [Concomitant]
     Dosage: UNK, 2X/DAY
  4. VITAMIN C [Concomitant]
     Dosage: 500 MG, UNK
  5. ASPIRIN [Concomitant]
     Dosage: 81 MG, DAILY
  6. VICODIN [Concomitant]
     Indication: PAIN
     Dosage: 75 MG, DAILY

REACTIONS (1)
  - Constipation [Not Recovered/Not Resolved]
